FAERS Safety Report 23711352 (Version 2)
Quarter: 2025Q1

REPORT INFORMATION
  Report Type: Spontaneous
  Country: US (occurrence: None)
  Receive Date: 20240405
  Receipt Date: 20250328
  Transmission Date: 20250408
  Serious: No
  Sender: AXSOME THERAPEUTICS, INC.
  Company Number: US-ARIS GLOBAL-AXS202403-000310

PATIENT
  Age: 33 Year
  Sex: Female

DRUGS (1)
  1. SUNOSI [Suspect]
     Active Substance: SOLRIAMFETOL
     Indication: Narcolepsy
     Route: 065
     Dates: start: 202402, end: 202403

REACTIONS (4)
  - Vision blurred [Recovering/Resolving]
  - Saliva altered [Unknown]
  - Eye pruritus [Recovering/Resolving]
  - Off label use [Unknown]

NARRATIVE: CASE EVENT DATE: 20240201
